FAERS Safety Report 21232824 (Version 1)
Quarter: 2022Q3

REPORT INFORMATION
  Report Type: Spontaneous
  Country: DE (occurrence: DE)
  Receive Date: 20220819
  Receipt Date: 20220819
  Transmission Date: 20221027
  Serious: Yes (Disabling)
  Sender: FDA-Public Use
  Company Number: DE-PFIZER INC-PV202200043283

PATIENT
  Age: 47 Year
  Sex: Male

DRUGS (1)
  1. GEMFIBROZIL [Suspect]
     Active Substance: GEMFIBROZIL
     Indication: Blood cholesterol increased
     Dosage: UNK, 1X/DAY
     Dates: start: 20220810, end: 20220813

REACTIONS (2)
  - Fatigue [Unknown]
  - Sleep disorder [Unknown]
